FAERS Safety Report 25831094 (Version 1)
Quarter: 2025Q3

REPORT INFORMATION
  Report Type: Spontaneous
  Country: GB (occurrence: GB)
  Receive Date: 20250922
  Receipt Date: 20250922
  Transmission Date: 20251021
  Serious: Yes (Hospitalization)
  Sender: MYLAN
  Company Number: GB-MYLANLABS-2025M1074974

PATIENT
  Sex: Male

DRUGS (3)
  1. CLOZARIL [Suspect]
     Active Substance: CLOZAPINE
     Indication: Schizophrenia
  2. CLOZARIL [Suspect]
     Active Substance: CLOZAPINE
     Dates: start: 20010701, end: 20250825
  3. CLOZARIL [Suspect]
     Active Substance: CLOZAPINE

REACTIONS (4)
  - Hospitalisation [Unknown]
  - Malaise [Unknown]
  - COVID-19 [Unknown]
  - Treatment noncompliance [Unknown]
